FAERS Safety Report 6315914-5 (Version None)
Quarter: 2009Q3

REPORT INFORMATION
  Report Type: 
  Country: None (occurrence: None)
  Receive Date: 20090820
  Receipt Date: 20090814
  Transmission Date: 20100115
  Serious: Yes (Death, Hospitalization)
  Sender: FDA-Public Use
  Company Number: US-ELI_LILLY_AND_COMPANY-US200908003365

PATIENT
  Sex: Male

DRUGS (3)
  1. HUMALOG [Suspect]
  2. LANTUS [Concomitant]
  3. APIDRA [Concomitant]

REACTIONS (6)
  - BLOOD GLUCOSE INCREASED [None]
  - CATARACT [None]
  - DEATH [None]
  - DEHYDRATION [None]
  - EXPIRED DRUG ADMINISTERED [None]
  - RENAL DISORDER [None]
